FAERS Safety Report 16676307 (Version 1)
Quarter: 2019Q3

REPORT INFORMATION
  Report Type: Report from Study
  Country: None (occurrence: CA)
  Receive Date: 20190807
  Receipt Date: 20190807
  Transmission Date: 20191004
  Serious: Yes (Other)
  Sender: FDA-Public Use
  Company Number: CA-ABBVIE-19K-028-2875423-00

PATIENT
  Sex: Male

DRUGS (1)
  1. HUMIRA [Suspect]
     Active Substance: ADALIMUMAB
     Indication: CROHN^S DISEASE
     Route: 058
     Dates: start: 20130426

REACTIONS (19)
  - Pain [Unknown]
  - Diarrhoea [Recovered/Resolved]
  - Malaise [Recovered/Resolved]
  - Stomach mass [Unknown]
  - Lower respiratory tract infection [Recovered/Resolved]
  - Nausea [Recovered/Resolved]
  - Scar [Not Recovered/Not Resolved]
  - Joint swelling [Recovered/Resolved]
  - Arthritis [Not Recovered/Not Resolved]
  - Erythema nodosum [Recovered/Resolved]
  - Nasopharyngitis [Recovered/Resolved]
  - Defaecation urgency [Not Recovered/Not Resolved]
  - Bone fistula [Unknown]
  - Cough [Recovered/Resolved]
  - Decreased appetite [Recovered/Resolved]
  - Polyp [Unknown]
  - Venous injury [Unknown]
  - Vomiting [Recovered/Resolved]
  - Irritable bowel syndrome [Not Recovered/Not Resolved]

NARRATIVE: CASE EVENT DATE: 2016
